FAERS Safety Report 16679499 (Version 1)
Quarter: 2019Q3

REPORT INFORMATION
  Report Type: Spontaneous
  Country: MX (occurrence: MX)
  Receive Date: 20190807
  Receipt Date: 20190807
  Transmission Date: 20191004
  Serious: Yes (Other)
  Sender: FDA-Public Use
  Company Number: MX-ASTRAZENECA-2019SE88732

PATIENT
  Age: 74 Year
  Sex: Female
  Weight: 85 kg

DRUGS (5)
  1. ESPAVEN [Concomitant]
     Indication: HAEMORRHAGE
     Dosage: BID
     Route: 048
     Dates: start: 201905, end: 201907
  2. FORXIGA [Suspect]
     Active Substance: DAPAGLIFLOZIN
     Indication: TYPE 2 DIABETES MELLITUS
     Route: 048
     Dates: end: 201905
  3. XIGDUO XR [Suspect]
     Active Substance: DAPAGLIFLOZIN PROPANEDIOL\METFORMIN HYDROCHLORIDE
     Indication: TYPE 2 DIABETES MELLITUS
     Dosage: 10/1000, 20 MG EVERY DAY
     Route: 048
     Dates: start: 201905
  4. INSULIN [Concomitant]
     Active Substance: INSULIN NOS
     Indication: DIABETES MELLITUS
     Dosage: 25 IU DAILY
     Route: 058
     Dates: start: 201901
  5. PANTOPRAZOL [Concomitant]
     Active Substance: PANTOPRAZOLE SODIUM
     Indication: HAEMORRHAGE
     Route: 048
     Dates: start: 201905

REACTIONS (8)
  - Blood glucose increased [Not Recovered/Not Resolved]
  - Gastrooesophageal reflux disease [Unknown]
  - Overdose [Not Recovered/Not Resolved]
  - Dry mouth [Recovering/Resolving]
  - Off label use [Not Recovered/Not Resolved]
  - Faeces discoloured [Unknown]
  - Drug ineffective [Recovered/Resolved]
  - Dyspnoea [Not Recovered/Not Resolved]

NARRATIVE: CASE EVENT DATE: 2018
